FAERS Safety Report 6482420-7 (Version None)
Quarter: 2009Q4

REPORT INFORMATION
  Report Type: 
  Country: None (occurrence: None)
  Receive Date: 20091208
  Receipt Date: 20090508
  Transmission Date: 20100525
  Serious: No
  Sender: FDA-Public Use
  Company Number: US-AMGEN-TCS346442

PATIENT
  Sex: Female

DRUGS (2)
  1. ENBREL [Suspect]
     Indication: RHEUMATOID ARTHRITIS
     Route: 058
     Dates: start: 20080315
  2. METHOTREXATE [Concomitant]
     Dates: start: 20080315

REACTIONS (9)
  - BACK PAIN [None]
  - COUGH [None]
  - EXCORIATION [None]
  - FATIGUE [None]
  - LOCALISED INFECTION [None]
  - MULTIPLE ALLERGIES [None]
  - NIGHT SWEATS [None]
  - PNEUMONIA [None]
  - SINUSITIS [None]
